FAERS Safety Report 6442814-2 (Version None)
Quarter: 2009Q4

REPORT INFORMATION
  Report Type: 
  Country: None (occurrence: None)
  Receive Date: 20091112
  Receipt Date: 20091027
  Transmission Date: 20100525
  Serious: Yes (Life-Threatening)
  Sender: FDA-Public Use
  Company Number: 421133

PATIENT
  Age: 55 Year
  Sex: Male

DRUGS (7)
  1. PACLITAXEL [Suspect]
     Dosage: 320 MG, INTRAVENOUS
     Route: 042
     Dates: start: 20090914, end: 20090914
  2. (FLUOROURACIL) [Concomitant]
  3. CISPLATIN [Concomitant]
  4. ONDANSETRON [Concomitant]
  5. DEXAMETHASONE TAB [Concomitant]
  6. TRIMETON [Concomitant]
  7. (LIMICAN) [Concomitant]

REACTIONS (5)
  - BLOOD CREATINE PHOSPHOKINASE INCREASED [None]
  - BLOOD LACTATE DEHYDROGENASE INCREASED [None]
  - MYALGIA [None]
  - NEUTROPENIA [None]
  - PYREXIA [None]
